FAERS Safety Report 10332311 (Version 1)
Quarter: 2014Q3

REPORT INFORMATION
  Report Type: Spontaneous
  Country: US (occurrence: US)
  Receive Date: 20140722
  Receipt Date: 20140722
  Transmission Date: 20150326
  Serious: No
  Sender: FDA-Public Use
  Company Number: US-ASTRAZENECA-2014SE23500

PATIENT
  Sex: Male

DRUGS (5)
  1. AVANE [Concomitant]
     Dosage: NOT REPORTED UNK
  2. DEPAKOTE [Concomitant]
     Active Substance: DIVALPROEX SODIUM
     Dosage: NOT REPORTED UNK
  3. ATIVAN [Concomitant]
     Active Substance: LORAZEPAM
     Dosage: NOT REPORTED UNK
  4. SEROQUEL [Suspect]
     Active Substance: QUETIAPINE FUMARATE
     Indication: SCHIZOPHRENIA
     Route: 048
  5. LATUDA [Concomitant]
     Active Substance: LURASIDONE HYDROCHLORIDE
     Indication: DEPRESSION

REACTIONS (4)
  - Hallucination [Unknown]
  - Feeling abnormal [Not Recovered/Not Resolved]
  - Psychotic disorder [Unknown]
  - Hallucination, auditory [Not Recovered/Not Resolved]
